FAERS Safety Report 8853244 (Version 1)
Quarter: 2012Q4

REPORT INFORMATION
  Report Type: 
  Country: US (occurrence: US)
  Receive Date: 20121022
  Receipt Date: 20121022
  Transmission Date: 20130627
  Serious: No
  Sender: FDA-Public Use
  Company Number: US-BAYER-2012-109433

PATIENT
  Age: 62 Year
  Sex: Female

DRUGS (11)
  1. BETASERON [Suspect]
     Dosage: 0.25 mg (1mL), QOD
     Route: 058
  2. PROZAC [Concomitant]
     Dosage: 10 mg, UNK
     Route: 048
  3. VERAPAMIL [Concomitant]
     Dosage: 180 mg, UNK
     Route: 048
  4. ADVIL [Concomitant]
     Dosage: 200 mg, UNK
     Route: 048
  5. ALDACTONE [SPIRONOLACTONE] [Concomitant]
     Dosage: 100 mg, UNK
     Route: 048
  6. BACLOFEN [Concomitant]
     Dosage: 20 mg, UNK
     Route: 048
  7. AMBIEN [Concomitant]
     Dosage: 10 mg, UNK
     Route: 048
  8. MULTIVITAMIN [Concomitant]
     Route: 048
  9. VITAMIN B12 [Concomitant]
     Dosage: 1000 ?g, UNK
     Route: 048
  10. SUDAFED [Concomitant]
     Dosage: 240 mg, UNK
     Route: 048
  11. TYLENOL [PARACETAMOL] [Concomitant]
     Dosage: 650 mg, UNK
     Route: 048

REACTIONS (1)
  - Headache [Unknown]
